FAERS Safety Report 14197956 (Version 1)
Quarter: 2017Q4

REPORT INFORMATION
  Report Type: Spontaneous
  Country: US (occurrence: None)
  Receive Date: 20171116
  Receipt Date: 20171116
  Transmission Date: 20180321
  Serious: Yes (Death)
  Sender: FDA-Public Use
  Company Number: None

PATIENT
  Age: 47 Year
  Sex: Male
  Weight: 88.45 kg

DRUGS (2)
  1. ZYPREXA [Concomitant]
     Active Substance: OLANZAPINE
  2. OLANZAPINE, 10 MG ELI LILLY AND COMPANY [Suspect]
     Active Substance: OLANZAPINE
     Indication: SCHIZOPHRENIA
     Dosage: 10 MG HS; BID-STAT INTRAMUSCULAR
     Route: 030
     Dates: start: 20170714, end: 20170715

REACTIONS (1)
  - Sudden death [None]

NARRATIVE: CASE EVENT DATE: 20170715
